FAERS Safety Report 24762555 (Version 1)
Quarter: 2024Q4

REPORT INFORMATION
  Report Type: Spontaneous
  Country: ES (occurrence: ES)
  Receive Date: 20241221
  Receipt Date: 20241221
  Transmission Date: 20250114
  Serious: Yes (Hospitalization)
  Sender: TEVA
  Company Number: None

PATIENT
  Age: 57 Year
  Sex: Female

DRUGS (3)
  1. ENALAPRIL [Suspect]
     Active Substance: ENALAPRIL
     Indication: Hypertension
     Dosage: 1 TABLET EVERY 12 HOURS:28 TABLETS:
     Route: 048
     Dates: start: 20231213, end: 20240422
  2. TACROLIMUS [Suspect]
     Active Substance: TACROLIMUS
     Indication: Immunosuppression
     Dosage: 1 TABLET EVERY 24 HOURS: EXTENDED-RELEASE HARD CAPSULES, 30 CAPSULES
     Route: 048
     Dates: start: 20230331
  3. MYCOPHENOLIC ACID [Suspect]
     Active Substance: MYCOPHENOLIC ACID
     Indication: Immunosuppression
     Dosage: 1 TABLET EVERY 12 HOURS:
     Route: 048
     Dates: start: 20230518, end: 20240221

REACTIONS (1)
  - Pancreatitis acute [Recovered/Resolved]

NARRATIVE: CASE EVENT DATE: 20240420
